FAERS Safety Report 12839629 (Version 1)
Quarter: 2016Q4

REPORT INFORMATION
  Report Type: Other
  Country: CA (occurrence: CA)
  Receive Date: 20161012
  Receipt Date: 20161012
  Transmission Date: 20170207
  Serious: Yes (Other)
  Sender: FDA-Public Use
  Company Number: CA-APOTEX-2016AP012832

PATIENT
  Age: 85 Year
  Sex: Female

DRUGS (6)
  1. APO-NIFED PA [Suspect]
     Active Substance: NIFEDIPINE
     Dosage: (2 EVERY 1 DAY)60 MG, BID
     Route: 065
  2. APO-RAMIPRIL [Suspect]
     Active Substance: RAMIPRIL
     Indication: PRODUCT USED FOR UNKNOWN INDICATION
     Dosage: UNK
     Route: 065
  3. MINERALS NOS W/VITAMINS NOS [Concomitant]
     Active Substance: MINERALS\VITAMINS
     Indication: PRODUCT USED FOR UNKNOWN INDICATION
     Dosage: UNK
     Route: 065
  4. APO-NIFED PA [Suspect]
     Active Substance: NIFEDIPINE
     Indication: HYPERTENSION
     Dosage: 30 MG, BID (2 EVERY 1 DAY)
     Route: 065
  5. ASPIRIN                            /00002701/ [Suspect]
     Active Substance: ASPIRIN
     Indication: PRODUCT USED FOR UNKNOWN INDICATION
     Dosage: 81 MG, QD
     Route: 065
  6. APO-NIFED PA [Suspect]
     Active Substance: NIFEDIPINE
     Dosage: 30 MG, BID (2 EVERY 1 DAY)
     Route: 065

REACTIONS (6)
  - Blood pressure increased [Recovering/Resolving]
  - Dysstasia [Recovering/Resolving]
  - Vertigo [Recovering/Resolving]
  - Hypertension [Recovering/Resolving]
  - Cough [Recovering/Resolving]
  - Dizziness [Recovering/Resolving]
